FAERS Safety Report 8373465-0 (Version None)
Quarter: 2012Q2

REPORT INFORMATION
  Report Type: 
  Country: None (occurrence: None)
  Receive Date: 20120521
  Receipt Date: 20110613
  Transmission Date: 20120825
  Serious: No
  Sender: FDA-Public Use
  Company Number: US-TEVA-2011002972

PATIENT
  Sex: Male
  Weight: 88.53 kg

DRUGS (13)
  1. MS CONTIN [Concomitant]
  2. RITUXAN [Concomitant]
  3. POTASSIUM CHLORIDE [Concomitant]
  4. BACTRIM [Concomitant]
  5. ASPIRIN [Concomitant]
  6. ZOFRAN [Concomitant]
  7. VIAGRA [Concomitant]
  8. TRAZODONE [Concomitant]
  9. TREANDA [Suspect]
     Indication: B-CELL LYMPHOMA
     Route: 042
     Dates: start: 20110516
  10. ALLOPURINOL [Concomitant]
     Dates: end: 20110613
  11. CALCIUM WITH VITAMIN D [Concomitant]
  12. SYNTHROID [Concomitant]
  13. DEXAMETHASONE [Concomitant]

REACTIONS (4)
  - ERYTHEMA [None]
  - INJECTION SITE EXTRAVASATION [None]
  - PAIN [None]
  - OEDEMA PERIPHERAL [None]
